FAERS Safety Report 24856545 (Version 1)
Quarter: 2025Q1

REPORT INFORMATION
  Report Type: Spontaneous
  Country: US (occurrence: None)
  Receive Date: 20250117
  Receipt Date: 20250117
  Transmission Date: 20250409
  Serious: Yes (Hospitalization)
  Sender: FDA-CTU
  Company Number: None

PATIENT
  Sex: Male

DRUGS (5)
  1. ENBREL [Suspect]
     Active Substance: ETANERCEPT
     Indication: Metabolic dysfunction-associated steatohepatitis
     Dosage: FREQUENCY : WEEKLY;?
     Route: 058
     Dates: start: 20250117
  2. METHOCARBAM TAB 500MG [Concomitant]
  3. OMEPRAZOLE [Concomitant]
     Active Substance: OMEPRAZOLE
  4. REZDIFFRA [Concomitant]
     Active Substance: RESMETIROM
  5. VALSARTAN [Concomitant]
     Active Substance: VALSARTAN

REACTIONS (2)
  - Pain [None]
  - Therapy interrupted [None]
